FAERS Safety Report 10055767 (Version 1)
Quarter: 2014Q2

REPORT INFORMATION
  Report Type: Spontaneous
  Country: US (occurrence: None)
  Receive Date: 20140402
  Receipt Date: 20140402
  Transmission Date: 20141212
  Serious: Yes (Other)
  Sender: FDA-Public Use
  Company Number: None

PATIENT
  Age: 42 Year
  Sex: Male
  Weight: 111 kg

DRUGS (8)
  1. VANCOMYCIN [Suspect]
     Indication: CELLULITIS
     Dates: start: 20140226, end: 20140226
  2. VANCOMYCIN [Suspect]
     Indication: OSTEOMYELITIS
     Dates: start: 20140226, end: 20140226
  3. ZOSYN [Suspect]
     Indication: CELLULITIS
     Dates: start: 20140226, end: 20140312
  4. ZOSYN [Suspect]
     Indication: OSTEOMYELITIS
     Dates: start: 20140226, end: 20140312
  5. AMLODIPINE [Concomitant]
  6. ASA [Concomitant]
  7. LIPITOR [Concomitant]
  8. FAMOTIDINE [Concomitant]

REACTIONS (1)
  - Renal failure acute [None]
